FAERS Safety Report 5586992-6 (Version None)
Quarter: 2008Q1

REPORT INFORMATION
  Report Type: 
  Country: None (occurrence: None)
  Receive Date: 20080110
  Receipt Date: 20080102
  Transmission Date: 20080703
  Serious: Yes (Death, Other)
  Sender: FDA-Public Use
  Company Number: ES-WYE-G00832508

PATIENT
  Age: 78 Year
  Sex: Male

DRUGS (1)
  1. TYGACIL [Suspect]
     Indication: CELLULITIS
     Dosage: UNKNOWN
     Dates: start: 20071221, end: 20071201

REACTIONS (2)
  - DEATH [None]
  - RASH [None]
